FAERS Safety Report 4639930-4 (Version None)
Quarter: 2005Q2

REPORT INFORMATION
  Report Type: 
  Country: None (occurrence: None)
  Receive Date: 20050415
  Receipt Date: 20050405
  Transmission Date: 20051028
  Serious: Yes (Death, Other)
  Sender: FDA-Public Use
  Company Number: 2005037065

PATIENT
  Age: 76 Year
  Sex: Female
  Weight: 72 kg

DRUGS (6)
  1. SERLAIN (SERTRALINE) [Suspect]
     Indication: DEPRESSION
     Dosage: ORAL
     Route: 048
     Dates: end: 20050201
  2. LISINOPRIL [Concomitant]
  3. POTASSIUM CANRENOATE (POTASSIUM CANRENOATE) [Concomitant]
  4. FLECAINIDE ACETATE [Concomitant]
  5. ACETAMINOPHEN [Concomitant]
  6. DIPYRIDAMOLE [Concomitant]

REACTIONS (5)
  - ANOREXIA [None]
  - CIRCULATORY COLLAPSE [None]
  - GASTROINTESTINAL HAEMORRHAGE [None]
  - HAEMATEMESIS [None]
  - NAUSEA [None]
